FAERS Safety Report 11036834 (Version 1)
Quarter: 2015Q2

REPORT INFORMATION
  Report Type: Spontaneous
  Country: US (occurrence: None)
  Receive Date: 20150415
  Receipt Date: 20150415
  Transmission Date: 20150821
  Serious: Yes (Life-Threatening, Hospitalization, Disabling)
  Sender: FDA-Public Use
  Company Number: None

PATIENT
  Age: 76 Year
  Sex: Female
  Weight: 82.56 kg

DRUGS (9)
  1. VICODIN [Concomitant]
     Active Substance: ACETAMINOPHEN\HYDROCODONE BITARTRATE
  2. METOPROLOL [Concomitant]
     Active Substance: METOPROLOL
  3. DIOVAN [Concomitant]
     Active Substance: VALSARTAN
  4. HYDROCODONE [Concomitant]
     Active Substance: HYDROCODONE
  5. SYNTHROID [Concomitant]
     Active Substance: LEVOTHYROXINE SODIUM
  6. NAPROXEN. [Suspect]
     Active Substance: NAPROXEN
     Indication: ARTHRALGIA
     Route: 048
     Dates: start: 20140422, end: 20140502
  7. ZOCOR [Concomitant]
     Active Substance: SIMVASTATIN
  8. ASPIRIN. [Concomitant]
     Active Substance: ASPIRIN
  9. APAP 325 [Concomitant]

REACTIONS (2)
  - Back pain [None]
  - Chest pain [None]

NARRATIVE: CASE EVENT DATE: 20140502
